FAERS Safety Report 7016354-6 (Version None)
Quarter: 2010Q3

REPORT INFORMATION
  Report Type: 
  Country: None (occurrence: None)
  Receive Date: 20100927
  Receipt Date: 20100920
  Transmission Date: 20110219
  Serious: Yes (Hospitalization, Other)
  Sender: FDA-Public Use
  Company Number: US-PFIZER INC-2009310970

PATIENT
  Sex: Female
  Weight: 131.52 kg

DRUGS (12)
  1. CHANTIX [Suspect]
     Indication: SMOKING CESSATION THERAPY
     Dosage: 0.5 MG, 1X/DAY
     Route: 048
     Dates: start: 20071116, end: 20071201
  2. CHANTIX [Suspect]
     Dosage: 1 MG, 2X/DAY
     Route: 048
     Dates: start: 20071207, end: 20071207
  3. PROZAC [Concomitant]
     Indication: DEPRESSION
     Dosage: UNK
  4. CYMBALTA [Concomitant]
     Indication: DEPRESSION
     Dosage: UNK
  5. LAMICTAL [Concomitant]
     Indication: AFFECTIVE DISORDER
     Dosage: 200 MG, UNK
  6. LANTUS [Concomitant]
     Indication: DIABETES MELLITUS
     Dosage: 85 UNITS, ONCE A DAY
     Dates: start: 20050201
  7. SITAGLIPTIN [Concomitant]
     Indication: DIABETES MELLITUS
     Dosage: 100 MG, 1X/DAY
  8. GLYBURIDE [Concomitant]
     Indication: DIABETES MELLITUS
     Dosage: 5 MG, 1X/DAY
  9. RELAFEN [Concomitant]
     Indication: ARTHRITIS
     Dosage: 750 MG, 2X/DAY
  10. TRAZODONE [Concomitant]
     Dosage: 100 MG, UNK
  11. ATIVAN [Concomitant]
     Dosage: UNK
  12. AVAPRO [Concomitant]
     Indication: HYPERTENSION
     Dosage: 150 MG, UNK

REACTIONS (5)
  - ACTIVITIES OF DAILY LIVING IMPAIRED [None]
  - AGITATION [None]
  - BALANCE DISORDER [None]
  - BIPOLAR DISORDER [None]
  - ENERGY INCREASED [None]
